FAERS Safety Report 6765580-X (Version None)
Quarter: 2010Q2

REPORT INFORMATION
  Report Type: 
  Country: None (occurrence: None)
  Receive Date: 20100611
  Receipt Date: 20100528
  Transmission Date: 20101027
  Serious: Yes (Other)
  Sender: FDA-Public Use
  Company Number: US-JNJCH-2010012151

PATIENT
  Age: 1 Year
  Sex: Male
  Weight: 10.4 kg

DRUGS (5)
  1. CHILDREN'S ZYRTEC ALLERGY [Suspect]
     Indication: HYPERSENSITIVITY
     Dosage: TEXT:1/2 TEASPOON TWICE DAILY
     Route: 048
  2. CONCENTRATED TYLENOL INFANT DROPS [Suspect]
     Indication: TEETHING
     Dosage: TEXT:2 DROPPERS EVERY 4-6 HOURS
     Route: 048
  3. CHILDREN'S TYLENOL SUSPENSION [Suspect]
     Indication: TEETHING
     Dosage: TEXT:1 TEASPOON UNSPECIFIED
     Route: 048
  4. CHILDREN'S MOTRIN [Suspect]
     Indication: DRUG USE FOR UNKNOWN INDICATION
     Dosage: TEXT:1 TEASPOON UNSPECIFIED
     Route: 048
  5. CHILDREN'S MOTRIN [Suspect]
     Dosage: TEXT:1 TEASPOON UNSPECIFIED
     Route: 048

REACTIONS (8)
  - CHILLS [None]
  - EATING DISORDER [None]
  - INSOMNIA [None]
  - MALAISE [None]
  - PRODUCT QUALITY ISSUE [None]
  - PYREXIA [None]
  - TRANSMISSION OF AN INFECTIOUS AGENT VIA A MEDICINAL PRODUCT [None]
  - WRONG DRUG ADMINISTERED [None]
